FAERS Safety Report 5196988-4 (Version None)
Quarter: 2006Q4

REPORT INFORMATION
  Report Type: 
  Country: None (occurrence: None)
  Receive Date: 20061227
  Receipt Date: 20061215
  Transmission Date: 20070319
  Serious: Yes (Hospitalization)
  Sender: FDA-Public Use
  Company Number: 2006154114

PATIENT
  Age: 47 Year
  Sex: Female

DRUGS (3)
  1. LYRICA [Suspect]
     Indication: CERVICAL SPINAL STENOSIS
     Dosage: 150 MG (75 MG,2 IN 1 D), ORAL
     Route: 048
     Dates: start: 20050301, end: 20060901
  2. OMEPRAZOLE [Suspect]
     Indication: GASTRITIS
     Dosage: 20 MG (20 MG, DAILY), ORAL
     Route: 048
     Dates: start: 20051201, end: 20060901
  3. TRYPTIZOL (AMITRIPTYLINE HYDROCHLORIDE) [Suspect]
     Indication: CERVICAL SPINAL STENOSIS
     Dosage: 25 MG (25 MG, DAILY), ORAL
     Route: 048
     Dates: start: 20030101, end: 20060901

REACTIONS (11)
  - DYSSTASIA [None]
  - FATIGUE [None]
  - GAIT DISTURBANCE [None]
  - HYPERVENTILATION [None]
  - HYPOAESTHESIA [None]
  - ILL-DEFINED DISORDER [None]
  - NASOPHARYNGITIS [None]
  - PHARYNGOLARYNGEAL PAIN [None]
  - STRESS [None]
  - TONGUE DISORDER [None]
  - VISUAL DISTURBANCE [None]
